FAERS Safety Report 4901329-0 (Version None)
Quarter: 2006Q1

REPORT INFORMATION
  Report Type: 
  Country: None (occurrence: None)
  Receive Date: 20060202
  Receipt Date: 20060123
  Transmission Date: 20060701
  Serious: Yes (Life-Threatening, Hospitalization)
  Sender: FDA-Public Use
  Company Number: 2006-137687-NL

PATIENT
  Age: 65 Year
  Sex: Female

DRUGS (6)
  1. REMERON [Suspect]
     Indication: ANXIETY
     Dates: start: 20040101, end: 20041101
  2. REMERON [Suspect]
     Indication: DEPRESSION
     Dates: start: 20040101, end: 20041101
  3. LEXAPRO [Suspect]
     Indication: ANXIETY
     Dosage: 10 MG DAILY ORAL, ABOUT ONE OR TWO WEEKS
     Route: 048
     Dates: start: 20041101, end: 20041101
  4. LEXAPRO [Suspect]
     Indication: DEPRESSION
     Dosage: 10 MG DAILY ORAL, ABOUT ONE OR TWO WEEKS
     Route: 048
     Dates: start: 20041101, end: 20041101
  5. LEXAPRO [Suspect]
     Indication: ANXIETY
     Dosage: 5 MG DAILY ORAL, INCREASING TO 10 MG
     Route: 048
     Dates: start: 20041101, end: 20041101
  6. LEXAPRO [Suspect]
     Indication: DEPRESSION
     Dosage: 5 MG DAILY ORAL, INCREASING TO 10 MG
     Route: 048
     Dates: start: 20041101, end: 20041101

REACTIONS (8)
  - AGITATION [None]
  - DEHYDRATION [None]
  - DRUG INEFFECTIVE [None]
  - DYSPHAGIA [None]
  - INTESTINAL INFARCTION [None]
  - OESOPHAGEAL OPERATION [None]
  - PRURITUS [None]
  - SUICIDE ATTEMPT [None]
